FAERS Safety Report 25994292 (Version 1)
Quarter: 2025Q4

REPORT INFORMATION
  Report Type: Spontaneous
  Country: US (occurrence: US)
  Receive Date: 20251104
  Receipt Date: 20251104
  Transmission Date: 20260117
  Serious: Yes (Other)
  Sender: SANDOZ
  Company Number: US-SANDOZ-SDZ2025US081302

PATIENT
  Age: 64 Year
  Sex: Female

DRUGS (6)
  1. AZITHROMYCIN [Suspect]
     Active Substance: AZITHROMYCIN
     Indication: Mycobacterium avium complex infection
     Dosage: UNK, TIW
     Route: 065
     Dates: start: 202309
  2. AZITHROMYCIN [Suspect]
     Active Substance: AZITHROMYCIN
     Dosage: UNK, TIW
     Route: 065
     Dates: start: 202407
  3. ARIKAYCE [Suspect]
     Active Substance: AMIKACIN
     Indication: Mycobacterium avium complex infection
     Dosage: UNK
     Route: 065
     Dates: start: 202407, end: 202508
  4. ETHAMBUTOL [Suspect]
     Active Substance: ETHAMBUTOL HYDROCHLORIDE
     Indication: Mycobacterium avium complex infection
     Dosage: UNK, TIW
     Route: 065
     Dates: start: 202309
  5. ETHAMBUTOL [Suspect]
     Active Substance: ETHAMBUTOL HYDROCHLORIDE
     Dosage: UNK, TIW
     Route: 065
     Dates: start: 202407
  6. RIFAMPIN [Suspect]
     Active Substance: RIFAMPIN
     Indication: Mycobacterium avium complex infection
     Dosage: UNK, TIW
     Route: 065
     Dates: start: 202309

REACTIONS (2)
  - Mycobacterium avium complex infection [Unknown]
  - Condition aggravated [Unknown]

NARRATIVE: CASE EVENT DATE: 20250101
